APPROVED DRUG PRODUCT: RANITIDINE HYDROCHLORIDE
Active Ingredient: RANITIDINE HYDROCHLORIDE
Strength: EQ 150MG BASE
Dosage Form/Route: TABLET;ORAL
Application: A091429 | Product #002
Applicant: PERRIGO R AND D CO
Approved: May 11, 2011 | RLD: No | RS: No | Type: DISCN